FAERS Safety Report 21135124 (Version 2)
Quarter: 2022Q3

REPORT INFORMATION
  Report Type: Spontaneous
  Country: CA (occurrence: CA)
  Receive Date: 20220727
  Receipt Date: 20220729
  Transmission Date: 20221027
  Serious: Yes (Hospitalization, Other)
  Sender: FDA-Public Use
  Company Number: CA-BAXTER-2022BAX015525

PATIENT
  Age: 67 Year
  Sex: Male

DRUGS (6)
  1. CYCLOPHOSPHAMIDE [Suspect]
     Active Substance: CYCLOPHOSPHAMIDE
     Indication: Chronic lymphocytic leukaemia
     Dosage: DOSAGE FORM: NOT SPECIFIED.
     Route: 065
  2. FLUDARABINE [Suspect]
     Active Substance: FLUDARABINE PHOSPHATE
     Indication: Chronic lymphocytic leukaemia
     Dosage: DOSAGE FORM: NOT SPECIFIED
     Route: 065
  3. RITUXAN [Suspect]
     Active Substance: RITUXIMAB
     Indication: Chronic lymphocytic leukaemia
     Dosage: UNK, 450.0 MG/M2
     Route: 065
  4. IBRUTINIB [Suspect]
     Active Substance: IBRUTINIB
     Indication: Chronic lymphocytic leukaemia
     Dosage: 140.0 MILLIGRAM, 1 EVERY 1 DAYS
     Route: 048
  5. IBRUTINIB [Suspect]
     Active Substance: IBRUTINIB
     Dosage: 420.0 MILLIGRAM, 1 EVERY 1 DAYS
     Route: 048
  6. RITUXIMAB [Suspect]
     Active Substance: RITUXIMAB
     Indication: Chronic lymphocytic leukaemia
     Route: 065

REACTIONS (8)
  - Off label use [Recovered/Resolved with Sequelae]
  - Aplastic anaemia [Recovered/Resolved]
  - Dermatitis acneiform [Recovered/Resolved]
  - Pancytopenia [Recovered/Resolved with Sequelae]
  - Cerebral aspergillosis [Recovered/Resolved]
  - Neutropenia [Recovered/Resolved]
  - Pleural effusion [Recovered/Resolved]
  - Pneumonia [Recovered/Resolved]
